FAERS Safety Report 5727635-8 (Version None)
Quarter: 2008Q2

REPORT INFORMATION
  Report Type: 
  Country: None (occurrence: None)
  Receive Date: 20080505
  Receipt Date: 20080429
  Transmission Date: 20081010
  Serious: Yes (Life-Threatening, Other)
  Sender: FDA-Public Use
  Company Number: A0718111A

PATIENT
  Age: 44 Year
  Sex: Male
  Weight: 73.2 kg

DRUGS (6)
  1. EPZICOM [Suspect]
     Indication: HIV INFECTION
     Dosage: 1TAB PER DAY
     Route: 048
     Dates: start: 20080316, end: 20080326
  2. ATOVAQUONE [Suspect]
     Dosage: 750MG TWICE PER DAY
     Route: 048
     Dates: start: 20080317, end: 20080326
  3. NORVIR [Concomitant]
     Dosage: 1CAP PER DAY
     Route: 048
     Dates: start: 20080312
  4. LEXIVA [Concomitant]
     Dosage: 2TAB PER DAY
     Route: 048
     Dates: start: 20080312
  5. AZITHROMYCIN [Concomitant]
     Dosage: 1200MG WEEKLY
     Route: 048
     Dates: start: 20080305
  6. BACTRIM [Concomitant]
     Route: 048
     Dates: start: 20080303, end: 20080317

REACTIONS (8)
  - DIARRHOEA [None]
  - FATIGUE [None]
  - HYPONATRAEMIA [None]
  - HYPOTENSION [None]
  - MALAISE [None]
  - PANCYTOPENIA [None]
  - PYREXIA [None]
  - RASH GENERALISED [None]
